FAERS Safety Report 5655721-X (Version None)
Quarter: 2008Q1

REPORT INFORMATION
  Report Type: 
  Country: None (occurrence: None)
  Receive Date: 20080307
  Receipt Date: 20080226
  Transmission Date: 20080703
  Serious: Yes (Hospitalization)
  Sender: FDA-Public Use
  Company Number: US-PFIZER INC-2008001099

PATIENT
  Sex: Male
  Weight: 139 kg

DRUGS (12)
  1. SUTENT [Suspect]
     Indication: RENAL CANCER METASTATIC
     Route: 048
  2. ATENOLOL [Concomitant]
     Route: 048
  3. ADVAIR DISKUS 100/50 [Concomitant]
     Route: 055
     Dates: start: 20060101
  4. CARDIZEM [Concomitant]
     Route: 048
  5. METFORMIN HCL [Concomitant]
     Route: 048
     Dates: start: 20070101
  6. CATAPRES [Concomitant]
     Route: 048
     Dates: start: 20040101
  7. ZOCOR [Concomitant]
     Route: 048
     Dates: start: 20060101
  8. LASIX [Concomitant]
     Route: 048
     Dates: start: 20040101
  9. K-DUR 10 [Concomitant]
     Route: 048
     Dates: start: 20040101
  10. ZOLOFT [Concomitant]
     Route: 048
     Dates: start: 20060101
  11. NICOTINE POLACRILEX [Concomitant]
     Route: 048
     Dates: start: 20071001
  12. ALBUTEROL [Concomitant]
     Route: 055

REACTIONS (2)
  - HYPONATRAEMIA [None]
  - MUSCULAR WEAKNESS [None]
